FAERS Safety Report 8557712-8 (Version None)
Quarter: 2012Q3

REPORT INFORMATION
  Report Type: 
  Country: None (occurrence: None)
  Receive Date: 20120801
  Receipt Date: 20090821
  Transmission Date: 20120928
  Serious: Yes (Death, Other)
  Sender: FDA-Public Use
  Company Number: CO-PFIZER INC-2012184021

PATIENT
  Age: 61 Year
  Sex: Female

DRUGS (5)
  1. HYDROCHLOROTHIAZIDE [Concomitant]
     Dosage: 25 MG, 1X/DAY
  2. NORVASC [Suspect]
     Dosage: 5 MG, 1X/DAY
  3. CAPTOPRIL [Concomitant]
     Dosage: 25 MG, 2X/DAY
  4. LIPITOR [Suspect]
     Dosage: 10 MG, 1X/DAY
  5. NIFEDIPINE [Concomitant]
     Dosage: 30 MG, 1X/DAY

REACTIONS (6)
  - ANGINA UNSTABLE [None]
  - OBESITY [None]
  - HAEMATURIA [None]
  - DEATH [None]
  - PYURIA [None]
  - HYPERTENSIVE EMERGENCY [None]
